FAERS Safety Report 21315820 (Version 4)
Quarter: 2023Q1

REPORT INFORMATION
  Report Type: Spontaneous
  Country: BR (occurrence: BR)
  Receive Date: 20220909
  Receipt Date: 20230301
  Transmission Date: 20230417
  Serious: Yes (Hospitalization)
  Sender: FDA-Public Use
  Company Number: BR-CELLTRION INC.-2022BR014557

PATIENT

DRUGS (2)
  1. INFLIXIMAB [Suspect]
     Active Substance: INFLIXIMAB
     Indication: Crohn^s disease
     Dosage: 5 AMPOULES EVERY 8 WEEKS
     Route: 042
     Dates: start: 20220906
  2. INFLIXIMAB [Suspect]
     Active Substance: INFLIXIMAB
     Dosage: 4 AMPOULES EVERY 8 WEEKS
     Route: 042
     Dates: start: 20220906

REACTIONS (4)
  - Abdominal pain upper [Recovered/Resolved]
  - Treatment delayed [Unknown]
  - Therapy interrupted [Unknown]
  - Product prescribing issue [Unknown]
